FAERS Safety Report 9241143 (Version 1)
Quarter: 2013Q1

REPORT INFORMATION
  Report Type: Spontaneous
  Country: US (occurrence: None)
  Receive Date: 20121120
  Receipt Date: 20121120
  Transmission Date: 20140127
  Serious: No
  Sender: FDA-Public Use
  Company Number: 1000038526

PATIENT
  Age: 63 Year
  Sex: Female

DRUGS (11)
  1. VIIBRYD [Suspect]
     Indication: DEPRESSION
     Dosage: 10 MG, 1 IN 1 D
     Route: 048
     Dates: start: 201208, end: 201208
  2. CLONOPIN (CLONAZEPAM) [Concomitant]
  3. HYDRALAZINE [Concomitant]
  4. COREG (CARVEDILOL) [Concomitant]
  5. HYDROCHLOROTHIAZIDE [Concomitant]
  6. LOSARTAN [Concomitant]
  7. DETROL LA(TOLTERODIN L-TARTRATE) [Concomitant]
  8. TAMBOCOR (FLECAINIDE ACETATE) [Concomitant]
  9. VALTREX (VALACICLOVIR HYDROCHLORIDE) [Concomitant]
  10. GLUCOPHAGE (METFORMIN HYDROCHLORIDE) [Concomitant]
  11. ONGLYZA (SAXAGLIPTIN HYDROCHLORIDE) [Concomitant]

REACTIONS (3)
  - Restless legs syndrome [None]
  - Yawning [None]
  - Somnolence [None]
